FAERS Safety Report 4485326-8 (Version None)
Quarter: 2004Q3

REPORT INFORMATION
  Report Type: 
  Country: None (occurrence: None)
  Receive Date: 20040921
  Receipt Date: 20040512
  Transmission Date: 20050211
  Serious: Yes (Hospitalization)
  Sender: FDA-Public Use
  Company Number: 163-20785-04050371

PATIENT
  Age: 69 Year
  Sex: Male

DRUGS (10)
  1. THALOMID [Suspect]
     Indication: MULTIPLE MYELOMA
     Dosage: 200 MG, HS BID, ORAL
     Route: 048
  2. OXYCODONE CR (SUSTAINED-RELEASE TABLET) [Concomitant]
  3. OXYCODONE (OXYCODONE) [Concomitant]
  4. TEQUIN [Concomitant]
  5. AUGMENTIN '125' [Concomitant]
  6. BACTRIM DS [Concomitant]
  7. ITRACONAZOLE [Concomitant]
  8. ACYCLOVIR [Concomitant]
  9. COUMADIN [Concomitant]
  10. ATIVAN [Concomitant]

REACTIONS (3)
  - FEMUR FRACTURE [None]
  - HYPOXIA [None]
  - PNEUMONIA [None]
